FAERS Safety Report 4585495-5 (Version None)
Quarter: 2005Q1

REPORT INFORMATION
  Report Type: 
  Country: None (occurrence: None)
  Receive Date: 20050214
  Receipt Date: 20050204
  Transmission Date: 20050727
  Serious: Yes (Other)
  Sender: FDA-Public Use
  Company Number: TPA2005A00072

PATIENT
  Age: 32 Year
  Sex: Male
  Weight: 72.6 kg

DRUGS (4)
  1. PIOGLITAZONE HCL [Suspect]
     Dosage: 30 MG, 1 IN 1 D, PER ORAL
     Route: 048
     Dates: start: 20040920, end: 20041215
  2. AVONEX [Concomitant]
  3. PROVIGIL [Concomitant]
  4. 4-AMINOPYRIDINE (FAMPRIDINE) [Concomitant]

REACTIONS (1)
  - BLOOD CREATINE PHOSPHOKINASE INCREASED [None]
